FAERS Safety Report 15792746 (Version 1)
Quarter: 2019Q1

REPORT INFORMATION
  Report Type: Spontaneous
  Country: US (occurrence: US)
  Receive Date: 20190107
  Receipt Date: 20190107
  Transmission Date: 20190417
  Serious: Yes (Hospitalization, Other)
  Sender: FDA-Public Use
  Company Number: US-AUROBINDO-AUR-APU-2017-44689

PATIENT

DRUGS (3)
  1. CEPHALEXIN CAPSULES [Suspect]
     Active Substance: CEPHALEXIN
     Indication: OROPHARYNGEAL PAIN
     Dosage: 50 MG, UNK
     Route: 048
     Dates: start: 20171030, end: 20171030
  2. TYLENOL [Suspect]
     Active Substance: ACETAMINOPHEN
     Indication: PRODUCT USED FOR UNKNOWN INDICATION
     Dosage: UNK
     Route: 065
  3. ROBITESSIN DM [Suspect]
     Active Substance: DEXTROMETHORPHAN HYDROBROMIDE\GUAIFENESIN
     Indication: OROPHARYNGEAL PAIN
     Dosage: 5 ML, UNK
     Route: 048
     Dates: start: 20171030, end: 20171030

REACTIONS (8)
  - Headache [Recovering/Resolving]
  - Anaphylactic shock [Recovered/Resolved]
  - Fall [Recovered/Resolved]
  - Pruritus generalised [Recovered/Resolved]
  - Malaise [Not Recovered/Not Resolved]
  - Asthenia [Not Recovered/Not Resolved]
  - Micturition urgency [Unknown]
  - Throat tightness [Unknown]

NARRATIVE: CASE EVENT DATE: 20171030
